FAERS Safety Report 4896409-2 (Version None)
Quarter: 2006Q1

REPORT INFORMATION
  Report Type: 
  Country: None (occurrence: None)
  Receive Date: 20060131
  Receipt Date: 20060123
  Transmission Date: 20060701
  Serious: Yes (Hospitalization)
  Sender: FDA-Public Use
  Company Number: 2006SE00536

PATIENT
  Age: 75 Year
  Sex: Male

DRUGS (5)
  1. METOPROLOL SUCCINATE [Suspect]
     Indication: ESSENTIAL HYPERTENSION
     Route: 048
     Dates: start: 20050401, end: 20051115
  2. FELODIPINE [Concomitant]
  3. ENALAPRIL [Concomitant]
  4. ESIDRIX [Concomitant]
  5. TROMBYL [Concomitant]

REACTIONS (2)
  - LARYNGOSPASM [None]
  - RESPIRATORY DISTRESS [None]
